FAERS Safety Report 4885648-2 (Version None)
Quarter: 2005Q4

REPORT INFORMATION
  Report Type: 
  Country: None (occurrence: None)
  Receive Date: 20051220
  Receipt Date: 20041207
  Transmission Date: 20060501
  Serious: Yes (Hospitalization)
  Sender: FDA-Public Use
  Company Number: HQWYE860708DEC04

PATIENT
  Age: 43 Year
  Sex: Female
  Weight: 83.99 kg

DRUGS (15)
  1. EFFEXOR XR [Suspect]
     Indication: DEPRESSION
     Dosage: SEE IMAGE
     Route: 048
     Dates: start: 19930101, end: 20041205
  2. EFFEXOR XR [Suspect]
     Indication: DEPRESSION
     Dosage: SEE IMAGE
     Route: 048
     Dates: start: 20041206
  3. NORVASC [Concomitant]
  4. IMDUR [Concomitant]
  5. NEXIUM [Concomitant]
  6. LOPRESSOR [Concomitant]
  7. PLAVIX [Concomitant]
  8. ZOCOR [Concomitant]
  9. TOPAMAX [Concomitant]
  10. VITAMIN D [Concomitant]
  11. CALCUM (CALCIUM) [Concomitant]
  12. NITROGLYCERIN ^A.L.^ (GLYCERYL TRINITRATE) [Concomitant]
  13. FLEXERIL [Concomitant]
  14. PERCOCET [Concomitant]
  15. ASPIRIN [Concomitant]

REACTIONS (3)
  - ARRHYTHMIA [None]
  - EXTRASYSTOLES [None]
  - SYNCOPE [None]
